FAERS Safety Report 8941753 (Version 2)
Quarter: 2013Q1

REPORT INFORMATION
  Report Type: Spontaneous
  Country: IT (occurrence: IT)
  Receive Date: 20121203
  Receipt Date: 20130217
  Transmission Date: 20140127
  Serious: Yes (Hospitalization)
  Sender: FDA-Public Use
  Company Number: IT-BRISTOL-MYERS SQUIBB COMPANY-17147059

PATIENT
  Age: 89 Year
  Sex: Male

DRUGS (3)
  1. COUMADIN TABS 5 MG [Suspect]
     Indication: ATRIAL FIBRILLATION
     Route: 048
     Dates: start: 20110101, end: 20120702
  2. SELES BETA [Concomitant]
     Dosage: TABS
     Route: 048
  3. TAVOR [Concomitant]
     Dosage: TABS
     Route: 048

REACTIONS (2)
  - Head injury [Recovered/Resolved]
  - Haemorrhage [Recovered/Resolved]
